FAERS Safety Report 5794345-0 (Version None)
Quarter: 2008Q2

REPORT INFORMATION
  Report Type: 
  Country: None (occurrence: None)
  Receive Date: 20080625
  Receipt Date: 20080616
  Transmission Date: 20081010
  Serious: Yes (Other)
  Sender: FDA-Public Use
  Company Number: 2008AP001539

PATIENT
  Age: 75 Year
  Sex: Male

DRUGS (9)
  1. AMIODARONE HCL [Suspect]
     Dosage: 400 MG;QD; , 150 MG; IV
     Route: 042
  2. CLOZAPINE [Suspect]
     Indication: SCHIZOPHRENIA
     Dosage: 150 MG; QD;, 300 MG;QD;
  3. IPRATROPIUM BROMIDE [Concomitant]
  4. ALBUTEROL [Concomitant]
  5. METOPROLOL SUCCINATE [Concomitant]
  6. PANTOPRAZOLE SODIUM [Concomitant]
  7. MAGNESIUM GLUCONATE [Concomitant]
  8. IRON [Concomitant]
  9. VALPROATE SODIUM [Concomitant]

REACTIONS (6)
  - ANTIPSYCHOTIC DRUG LEVEL ABOVE THERAPEUTIC [None]
  - DRUG INTERACTION [None]
  - MEDICAL DEVICE COMPLICATION [None]
  - PERICARDIAL EFFUSION [None]
  - PERICARDIAL HAEMORRHAGE [None]
  - VENTRICULAR TACHYCARDIA [None]
